FAERS Safety Report 8309145-7 (Version None)
Quarter: 2012Q2

REPORT INFORMATION
  Report Type: 
  Country: None (occurrence: None)
  Receive Date: 20120424
  Receipt Date: 20120417
  Transmission Date: 20120825
  Serious: Yes (Hospitalization, Other)
  Sender: FDA-Public Use
  Company Number: JP-ABBOTT-11P-087-0860242-00

PATIENT
  Sex: Male
  Weight: 48.8 kg

DRUGS (9)
  1. BUPRENORPHINE HCL [Concomitant]
     Indication: CROHN'S DISEASE
     Dosage: 0.4 MG DAILY
     Route: 054
     Dates: end: 20110614
  2. HUMIRA [Suspect]
     Dates: start: 20101217, end: 20101217
  3. HUMIRA [Suspect]
     Dates: start: 20110701
  4. TPN [Concomitant]
     Indication: CROHN'S DISEASE
     Dosage: 600 ML DAILY
     Route: 048
     Dates: end: 20110614
  5. HUMIRA [Suspect]
     Indication: CROHN'S DISEASE
     Route: 058
     Dates: start: 20101203, end: 20101203
  6. MESALAMINE [Concomitant]
     Indication: CROHN'S DISEASE
     Dosage: 4000MG DAILY
     Route: 048
  7. ENTECAVIR HYDRATE [Concomitant]
     Indication: PRODUCT USED FOR UNKNOWN INDICATION
     Dosage: 0.5 MG DAILY
     Route: 048
  8. BUPRENORPHINE HCL [Concomitant]
     Dates: end: 20110614
  9. HUMIRA [Suspect]
     Dates: start: 20101231, end: 20110603

REACTIONS (2)
  - CONDITION AGGRAVATED [None]
  - VIRAL INFECTION [None]
